FAERS Safety Report 4892466-8 (Version None)
Quarter: 2006Q1

REPORT INFORMATION
  Report Type: 
  Country: None (occurrence: None)
  Receive Date: 20060126
  Receipt Date: 20050315
  Transmission Date: 20060701
  Serious: No
  Sender: FDA-Public Use
  Company Number: US-BRISTOL-MYERS SQUIBB COMPANY-12897401

PATIENT
  Age: 51 Year
  Sex: Female
  Weight: 86 kg

DRUGS (3)
  1. CEFZIL [Suspect]
     Indication: PHARYNGITIS
     Route: 048
     Dates: start: 20050310, end: 20050312
  2. CEFZIL [Suspect]
     Indication: SINUSITIS
     Route: 048
     Dates: start: 20050310, end: 20050312
  3. FLONASE [Concomitant]

REACTIONS (3)
  - DISORIENTATION [None]
  - NAUSEA [None]
  - VOMITING [None]
